FAERS Safety Report 4376236-5 (Version None)
Quarter: 2004Q2

REPORT INFORMATION
  Report Type: 
  Country: None (occurrence: None)
  Receive Date: 20040608
  Receipt Date: 20030228
  Transmission Date: 20050107
  Serious: Yes (Other)
  Sender: FDA-Public Use
  Company Number: 200310741BCC

PATIENT
  Age: 18 Year
  Sex: Male
  Weight: 77.1115 kg

DRUGS (2)
  1. ALEVE [Suspect]
     Indication: HEADACHE
     Dosage: 220 MG, ONCE, ORAL
     Route: 048
     Dates: start: 20030226
  2. ORIGINAL ALKA-SELTZER TABLETS [Suspect]
     Indication: HEADACHE
     Dosage: 650 MG, ONCE, ORAL
     Route: 048
     Dates: start: 20030226

REACTIONS (1)
  - HAEMATEMESIS [None]
